FAERS Safety Report 25721589 (Version 1)
Quarter: 2025Q3

REPORT INFORMATION
  Report Type: Spontaneous
  Country: US (occurrence: US)
  Receive Date: 20250825
  Receipt Date: 20250825
  Transmission Date: 20251020
  Serious: No
  Sender: ROCHE
  Company Number: US-ROCHE-10000364813

PATIENT
  Age: 50 Year
  Sex: Female
  Weight: 63.5 kg

DRUGS (10)
  1. XOLAIR [Suspect]
     Active Substance: OMALIZUMAB
     Indication: Asthma
     Dosage: THERAPY WAS ONGOING
     Route: 058
  2. XOLAIR [Suspect]
     Active Substance: OMALIZUMAB
     Indication: Hypersensitivity
  3. SINGULAIR [Concomitant]
     Active Substance: MONTELUKAST SODIUM
     Dosage: THERAPY WAS ONGOING
  4. PROTONIX [Concomitant]
     Active Substance: PANTOPRAZOLE SODIUM
     Dosage: THERAPY WAS ONGOING
  5. MUCINEX [Concomitant]
     Active Substance: GUAIFENESIN
     Dosage: THERAPY WAS ONGOING
  6. ZYRTEC [Concomitant]
     Active Substance: CETIRIZINE HYDROCHLORIDE
     Dosage: THERAPY WAS ONGOING
  7. SYMBICORT [Concomitant]
     Active Substance: BUDESONIDE\FORMOTEROL FUMARATE DIHYDRATE
     Dosage: THERAPY WAS ONGOING
     Route: 055
  8. PULMICORT TURBUHALER [Concomitant]
     Active Substance: BUDESONIDE
     Dosage: THERAPY WAS ONGOING
     Route: 055
  9. FLONASE [Concomitant]
     Active Substance: FLUTICASONE PROPIONATE
     Dosage: THERAPY WAS ONGOING
     Route: 045
  10. XOPENEX [Concomitant]
     Active Substance: LEVALBUTEROL HYDROCHLORIDE
     Dosage: THERAPY WAS ONGOING
     Route: 055

REACTIONS (7)
  - Exposure via skin contact [Unknown]
  - Insomnia [Not Recovered/Not Resolved]
  - Injection site mass [Unknown]
  - Haemorrhage [Unknown]
  - Device malfunction [Unknown]
  - Product dose omission issue [Unknown]
  - Road traffic accident [Unknown]

NARRATIVE: CASE EVENT DATE: 20250813
